FAERS Safety Report 7700143-0 (Version None)
Quarter: 2011Q3

REPORT INFORMATION
  Report Type: 
  Country: None (occurrence: None)
  Receive Date: 20110822
  Receipt Date: 20110817
  Transmission Date: 20111222
  Serious: Yes (Hospitalization, Other)
  Sender: FDA-Public Use
  Company Number: US-PFIZER INC-2011135295

PATIENT
  Sex: Male

DRUGS (1)
  1. CHANTIX [Suspect]
     Indication: SMOKING CESSATION THERAPY
     Dosage: 1 MG

REACTIONS (10)
  - DELUSION [None]
  - CONFUSIONAL STATE [None]
  - PARANOIA [None]
  - HALLUCINATION [None]
  - DEPRESSION [None]
  - PSYCHOTIC DISORDER [None]
  - MENTAL DISORDER [None]
  - MENTAL IMPAIRMENT [None]
  - AMNESIA [None]
  - ANXIETY [None]
